FAERS Safety Report 4517951-X (Version None)
Quarter: 2004Q4

REPORT INFORMATION
  Report Type: 
  Country: None (occurrence: None)
  Receive Date: 20041130
  Receipt Date: 20041116
  Transmission Date: 20050328
  Serious: Yes (Other)
  Sender: FDA-Public Use
  Company Number: B0357584A

PATIENT
  Sex: Female

DRUGS (2)
  1. COMBIVIR [Suspect]
  2. NEVIRAPINE (FORMULATION UNKNOWN) (NEVIRAPINE) [Suspect]

REACTIONS (2)
  - DRUG EXPOSURE DURING PREGNANCY [None]
  - STEVENS-JOHNSON SYNDROME [None]
